FAERS Safety Report 5897718-0 (Version None)
Quarter: 2008Q3

REPORT INFORMATION
  Report Type: 
  Country: None (occurrence: None)
  Receive Date: 20080925
  Receipt Date: 20080917
  Transmission Date: 20090109
  Serious: Yes (Other)
  Sender: FDA-Public Use
  Company Number: PHHY2008DE19002

PATIENT
  Sex: Female
  Weight: 76.5 kg

DRUGS (1)
  1. EXFORGE [Suspect]
     Indication: HYPERTENSION
     Dosage: 1 DF, QD
     Dates: start: 20080711, end: 20080822

REACTIONS (5)
  - BURNOUT SYNDROME [None]
  - INTRAOCULAR PRESSURE INCREASED [None]
  - OEDEMA PERIPHERAL [None]
  - SLEEP DISORDER [None]
  - VISUAL IMPAIRMENT [None]
